FAERS Safety Report 7348741-0 (Version None)
Quarter: 2011Q1

REPORT INFORMATION
  Report Type: 
  Country: None (occurrence: None)
  Receive Date: 20110314
  Receipt Date: 20110302
  Transmission Date: 20110831
  Serious: No
  Sender: FDA-Public Use
  Company Number: US-BIOGENIDEC-2011BI008348

PATIENT
  Age: 56 Year
  Sex: Female

DRUGS (1)
  1. AVONEX [Suspect]
     Indication: MULTIPLE SCLEROSIS
     Route: 030
     Dates: start: 20091104

REACTIONS (8)
  - HEADACHE [None]
  - DYSPHAGIA [None]
  - WEIGHT INCREASED [None]
  - DYSGEUSIA [None]
  - SENSATION OF HEAVINESS [None]
  - PARAESTHESIA [None]
  - HEAD DISCOMFORT [None]
  - PARAESTHESIA ORAL [None]
